FAERS Safety Report 10185118 (Version 4)
Quarter: 2014Q4

REPORT INFORMATION
  Report Type: Report from Study
  Country: CA (occurrence: None)
  Receive Date: 20140519
  Receipt Date: 20141010
  Transmission Date: 20150528
  Serious: Yes (Hospitalization, Other)
  Sender: FDA-Public Use
  Company Number: CA-015672

PATIENT
  Age: 66 Year
  Sex: Male

DRUGS (10)
  1. FIRMAGON [Suspect]
     Active Substance: DEGARELIX ACETATE
     Indication: PROSTATE CANCER
     Dosage: 80 MG 1X/MONTH SUBCUTANEOUS
     Route: 058
     Dates: start: 20121101
  2. CALCIUM [Concomitant]
     Active Substance: CALCIUM
  3. METOCLOPRAMIDE. [Concomitant]
     Active Substance: METOCLOPRAMIDE
  4. MACROBID [Concomitant]
     Active Substance: NITROFURANTOIN\NITROFURANTOIN MONOHYDRATE
  5. AMLODIPINE [Concomitant]
     Active Substance: AMLODIPINE BESYLATE
  6. VITAMIN D [Concomitant]
     Active Substance: CHOLECALCIFEROL
  7. HYDROMORPHONE [Concomitant]
     Active Substance: HYDROMORPHONE
  8. FENTANYL. [Concomitant]
     Active Substance: FENTANYL
  9. RABEPRAZOLE [Concomitant]
     Active Substance: RABEPRAZOLE
  10. NITRO-SPRAY [Concomitant]

REACTIONS (13)
  - Chills [None]
  - Hypertension [None]
  - Feeling cold [None]
  - Malignant neoplasm of spinal cord [None]
  - Device issue [None]
  - Influenza like illness [None]
  - Cystitis [None]
  - Neoplasm malignant [None]
  - Pain in extremity [None]
  - Tremor [None]
  - White blood cell count decreased [None]
  - Hypoaesthesia [None]
  - Chest pain [None]
